FAERS Safety Report 16793826 (Version 1)
Quarter: 2019Q3

REPORT INFORMATION
  Report Type: Spontaneous
  Country: SE (occurrence: SE)
  Receive Date: 20190911
  Receipt Date: 20190911
  Transmission Date: 20191005
  Serious: Yes (Hospitalization)
  Sender: FDA-Public Use
  Company Number: SE-TEVA-2019-SE-1104204

PATIENT
  Age: 25 Year
  Sex: Female

DRUGS (3)
  1. LERGIGAN FORTE (PROMETHAZINE HYDROCHLORIDE) [Suspect]
     Active Substance: PROMETHAZINE HYDROCHLORIDE
     Dosage: 16 ST A 50 MG,  800 MG
     Route: 048
     Dates: start: 20190501, end: 20190501
  2. OLANZAPINE. [Suspect]
     Active Substance: OLANZAPINE
     Dosage: 16 ST A 10 MG
     Route: 048
     Dates: start: 20190501, end: 20190501
  3. ALIMEMAZINE [Suspect]
     Active Substance: TRIMEPRAZINE
     Dosage: 26 ST A 20 MG, 520 MG
     Route: 048
     Dates: start: 20190501, end: 20190501

REACTIONS (4)
  - Tachycardia [Unknown]
  - Intentional self-injury [Unknown]
  - Somnolence [Unknown]
  - Intentional overdose [Unknown]

NARRATIVE: CASE EVENT DATE: 20190501
